FAERS Safety Report 18211835 (Version 3)
Quarter: 2022Q3

REPORT INFORMATION
  Report Type: Spontaneous
  Country: JP (occurrence: JP)
  Receive Date: 20200831
  Receipt Date: 20220726
  Transmission Date: 20221026
  Serious: Yes (Hospitalization, Other)
  Sender: FDA-Public Use
  Company Number: JP-CHUGAI-A2020013906ROCHE

PATIENT
  Age: 69 Year
  Sex: Female

DRUGS (6)
  1. GAZYVA [Suspect]
     Active Substance: OBINUTUZUMAB
     Indication: Lymphoma
     Dosage: MOST RECENT DOSE ON /APR/2020
     Route: 041
  2. GAZYVA [Suspect]
     Active Substance: OBINUTUZUMAB
     Dosage: UNK, SINGLE
     Route: 041
  3. ARIMIDEX [Suspect]
     Active Substance: ANASTROZOLE
     Indication: Breast cancer
     Dosage: UNK
     Route: 048
     Dates: start: 202004
  4. LENOGRASTIM [Suspect]
     Active Substance: LENOGRASTIM
     Indication: White blood cell count decreased
     Route: 065
     Dates: start: 2020
  5. LENOGRASTIM [Suspect]
     Active Substance: LENOGRASTIM
     Indication: Neutrophil count decreased
  6. BENDAMUSTINE HYDROCHLORIDE [Concomitant]
     Active Substance: BENDAMUSTINE HYDROCHLORIDE
     Indication: Lymphoma
     Route: 041
     Dates: end: 2019

REACTIONS (7)
  - Stomatitis [Not Recovered/Not Resolved]
  - Behcet^s syndrome [Unknown]
  - Blood albumin decreased [Unknown]
  - Weight decreased [Unknown]
  - White blood cell count decreased [Unknown]
  - Neutrophil count decreased [Unknown]
  - Drug ineffective [Unknown]

NARRATIVE: CASE EVENT DATE: 20200101
